FAERS Safety Report 7549395-0 (Version None)
Quarter: 2011Q2

REPORT INFORMATION
  Report Type: 
  Country: None (occurrence: None)
  Receive Date: 20110615
  Receipt Date: 20110524
  Transmission Date: 20111010
  Serious: Yes (Hospitalization)
  Sender: FDA-Public Use
  Company Number: US-BAYER-201035786NA

PATIENT
  Age: 18 Year
  Sex: Female
  Weight: 113.38 kg

DRUGS (5)
  1. PERCOCET [Concomitant]
     Indication: PAIN
  2. TOPAMAX [Concomitant]
     Indication: MENSTRUATION IRREGULAR
  3. CLARITIN [Concomitant]
  4. DROSPIRENONE AND ETHINYL ESTRADIOL [Suspect]
     Indication: POLYCYSTIC OVARIES
     Dosage: 1 DF, QD
     Route: 048
     Dates: start: 20090427, end: 20091231
  5. YAZ [Suspect]
     Indication: POLYCYSTIC OVARIES
     Dosage: 1 DF, QD
     Route: 048
     Dates: start: 20070822, end: 20090305

REACTIONS (6)
  - ADNEXA UTERI PAIN [None]
  - CHOLECYSTECTOMY [None]
  - BACK PAIN [None]
  - VOMITING [None]
  - CHOLECYSTITIS ACUTE [None]
  - CHOLELITHIASIS [None]
